FAERS Safety Report 8919821 (Version 2)
Quarter: 2013Q1

REPORT INFORMATION
  Report Type: Spontaneous
  Country: US (occurrence: US)
  Receive Date: 20121121
  Receipt Date: 20130315
  Transmission Date: 20140127
  Serious: Yes (Hospitalization, Other)
  Sender: FDA-Public Use
  Company Number: US-BAYER-2012-119993

PATIENT
  Sex: Female
  Weight: 72.56 kg

DRUGS (20)
  1. YASMIN [Suspect]
     Indication: CONTRACEPTION
     Dosage: UNK
     Dates: start: 20041130, end: 2009
  2. OCELLA [Suspect]
     Dosage: UNK
     Dates: start: 20090803, end: 2009
  3. IBUPROFEN [IBUPROFEN] [Concomitant]
  4. SOFTENERS, EMOLLIENTS [Concomitant]
  5. EXCEDRIN MIGRAINE [Concomitant]
  6. CARISOPRODOL [Concomitant]
     Dosage: 350 MG, UNK
  7. HYDROCODONE W/APAP [Concomitant]
     Dosage: 10-325
  8. FENTANYL [Concomitant]
     Dosage: 100 MCG/HR
  9. MORPHINE SULFATE [Concomitant]
     Dosage: 15 MG, UNK
  10. AMERGE [Concomitant]
     Dosage: 2.5 MG, UNK
  11. PROMETHAZINE [PROMETHAZINE] [Concomitant]
     Dosage: 25 MG, UNK
  12. MEPERIDINE [Concomitant]
     Dosage: 50 MG, UNK
  13. TRIAZOLAM [Concomitant]
     Dosage: 0.25 MG, UNK
  14. DIRAGESIC [Concomitant]
  15. SOMA [Concomitant]
  16. HALCION [Concomitant]
  17. TEGRETOL [Concomitant]
  18. MS CONTIN [Concomitant]
  19. NORCO [Concomitant]
  20. LEVAQUIN [Concomitant]

REACTIONS (11)
  - Cholelithiasis [None]
  - Pain [None]
  - Injury [None]
  - General physical health deterioration [None]
  - Anxiety [None]
  - Emotional distress [None]
  - Pain [None]
  - Malaise [None]
  - Abdominal pain upper [None]
  - Back pain [None]
  - Cholecystitis chronic [None]
